FAERS Safety Report 7112560-0 (Version None)
Quarter: 2010Q4

REPORT INFORMATION
  Report Type: 
  Country: None (occurrence: None)
  Receive Date: 20101119
  Receipt Date: 20100525
  Transmission Date: 20110411
  Serious: No
  Sender: FDA-Public Use
  Company Number: US-TEVA-234741USA

PATIENT
  Sex: Female

DRUGS (3)
  1. ALBUTEROL SULFATE AUTOHALER [Suspect]
     Indication: ASTHMA
     Dosage: 2 PUFFS 4-6 HOURS AS NEEDED
     Route: 055
  2. HYDROCHLOROTHIAZIDE [Concomitant]
     Indication: HYPERTENSION
  3. PANTOPRAZOLE [Concomitant]

REACTIONS (1)
  - SKIN TIGHTNESS [None]
